FAERS Safety Report 6613831-4 (Version None)
Quarter: 2010Q1

REPORT INFORMATION
  Report Type: 
  Country: None (occurrence: None)
  Receive Date: 20100225
  Receipt Date: 20100210
  Transmission Date: 20100710
  Serious: Yes (Hospitalization)
  Sender: FDA-Public Use
  Company Number: 2010000529

PATIENT
  Age: 67 Year
  Sex: Male
  Weight: 62.8 kg

DRUGS (18)
  1. ERLOTINIB (ERLOTINIB) (TABLET) (ERLOTINIB) [Suspect]
     Indication: LUNG ADENOCARCINOMA
     Dosage: (150 MG,QD), ORAL; (100 MG,QD), ORAL
     Route: 048
     Dates: start: 20080410, end: 20080508
  2. ERLOTINIB (ERLOTINIB) (TABLET) (ERLOTINIB) [Suspect]
     Indication: LUNG ADENOCARCINOMA
     Dosage: (150 MG,QD), ORAL; (100 MG,QD), ORAL
     Route: 048
     Dates: start: 20080509, end: 20090508
  3. MEROPENEM [Suspect]
     Indication: LUNG ADENOCARCINOMA
     Dosage: (1 GM,QD), INTRAVENOUS
     Route: 042
     Dates: start: 20080403, end: 20080416
  4. POLAPREZINC (POLAPREZINC) [Concomitant]
  5. PRAVASTATIN [Concomitant]
  6. FAMOTIDINE [Concomitant]
  7. METHYCOBAL (MECOBALAMIN) [Concomitant]
  8. CYTOTEC [Concomitant]
  9. LOXOPROFEN (LOXOPROFEN) [Concomitant]
  10. MUCODYNE (CARBOCISTEINE) [Concomitant]
  11. NOVAMIN (PROCHLORPERAZINE) [Concomitant]
  12. OXINORM (ORGOTEIN) [Concomitant]
  13. PURSENNIDE (SENNA LEAF) [Concomitant]
  14. MAGNESIUM OXIDE (MAGNESIUM OXIDE) [Concomitant]
  15. HEPARIN SODIUM [Concomitant]
  16. SOLDEM [Concomitant]
  17. VEEN D (VEEN D) [Concomitant]
  18. OXYCONTIN [Concomitant]

REACTIONS (1)
  - PULMONARY EMBOLISM [None]
